FAERS Safety Report 4924794-1 (Version None)
Quarter: 2006Q1

REPORT INFORMATION
  Report Type: 
  Country: None (occurrence: None)
  Receive Date: 20060222
  Receipt Date: 20060203
  Transmission Date: 20060701
  Serious: Yes (Hospitalization)
  Sender: FDA-Public Use
  Company Number: 2006000280

PATIENT
  Age: 41 Year
  Sex: Male
  Weight: 61 kg

DRUGS (10)
  1. ERLOTINIB HCL (TABLET) [Suspect]
     Indication: NON-SMALL CELL LUNG CANCER
     Dosage: 1500 MG (QD DAYS 1 AND 2 OF EACH CYCLE); ORAL
     Route: 048
     Dates: start: 20051116
  2. PACLITAXEL [Suspect]
     Indication: NON-SMALL CELL LUNG CANCER
     Dosage: 200 MG/MM^2; INTRAVENOUS
     Route: 042
     Dates: start: 20051118
  3. CARBOPLATIN [Suspect]
     Indication: NON-SMALL CELL LUNG CANCER
     Dosage: 6 AUC (ON DAY 3 OF EACH CYCLE); INTRAVENOUS
     Route: 042
     Dates: start: 20051118
  4. MEGACE [Concomitant]
  5. OXYCONTIN [Concomitant]
  6. FOLIC ACID [Concomitant]
  7. SENOKOT [Concomitant]
  8. COLACE (DOCUSATE SODIUM) [Concomitant]
  9. MULTIVITAMIN [Concomitant]
  10. LACTULOSE [Concomitant]

REACTIONS (1)
  - HAEMATURIA [None]
